FAERS Safety Report 5719944-3 (Version None)
Quarter: 2008Q2

REPORT INFORMATION
  Report Type: 
  Country: None (occurrence: None)
  Receive Date: 20080425
  Receipt Date: 20080425
  Transmission Date: 20081010
  Serious: Yes (Hospitalization)
  Sender: FDA-Public Use
  Company Number: None

PATIENT
  Age: 53 Year
  Sex: Male
  Weight: 104.2366 kg

DRUGS (13)
  1. DOCETAXEL [Suspect]
     Indication: PROSTATE CANCER METASTATIC
     Dosage: 75 MG/M2, Q21D, INTRAVENOUS
     Route: 042
     Dates: start: 20080220, end: 20080402
  2. MP-470 100 MG(TABLETS) [Suspect]
     Indication: PROSTATE CANCER METASTATIC
     Dosage: 100 MG (100 MG, QD), ORAL
     Route: 048
     Dates: start: 20080221, end: 20080419
  3. HYDROCODONE/APAP (PARACETAMOL HYDROCODONE) (TABLETS) (PARACETAMOL, HYD [Concomitant]
  4. DEXAMETHASONE TAB [Concomitant]
  5. PREDNISONE TAB [Concomitant]
  6. REGLAN [Concomitant]
  7. MORPHINE [Concomitant]
  8. PROTONIX [Concomitant]
  9. ACETAMINOPHEN [Concomitant]
  10. BENADRYL [Concomitant]
  11. DILAUDID [Concomitant]
  12. ZOFRAN [Concomitant]
  13. LOVENOX (HEPARIN-FRACTION, SODIUM SALT) (HEPARIN-FRACTION, SODIUM SALT [Concomitant]

REACTIONS (5)
  - CLAVICLE FRACTURE [None]
  - DISEASE PROGRESSION [None]
  - ORAL INTAKE REDUCED [None]
  - PANCYTOPENIA [None]
  - SYNCOPE [None]
